FAERS Safety Report 7621960-1 (Version None)
Quarter: 2011Q3

REPORT INFORMATION
  Report Type: 
  Country: None (occurrence: None)
  Receive Date: 20110720
  Receipt Date: 20101215
  Transmission Date: 20111222
  Serious: Yes (Hospitalization)
  Sender: FDA-Public Use
  Company Number: JP-BAYER-2010-005175

PATIENT
  Age: 83 Year
  Sex: Female

DRUGS (6)
  1. LOXOPROFEN SODIUM [Suspect]
     Route: 065
  2. REBAMIPIDE [Concomitant]
     Route: 065
  3. RALOXIFENE HYDROCHLORIDE [Concomitant]
     Route: 065
  4. ASPIRIN [Suspect]
     Route: 048
  5. AMLODIPINE BESYLATE [Concomitant]
     Route: 065
  6. OLMESARTAN MEDOXOMIL [Concomitant]
     Route: 065

REACTIONS (1)
  - UPPER GASTROINTESTINAL HAEMORRHAGE [None]
